FAERS Safety Report 5488561-5 (Version None)
Quarter: 2007Q3

REPORT INFORMATION
  Report Type: 
  Country: None (occurrence: None)
  Receive Date: 20070925
  Receipt Date: 20070719
  Transmission Date: 20080115
  Serious: No
  Sender: FDA-Public Use
  Company Number: 2007US001674

PATIENT
  Age: 75 Year
  Sex: Female
  Weight: 54.4 kg

DRUGS (2)
  1. VESICARE [Suspect]
     Indication: BLADDER DISORDER
     Dosage: 5 MG, UID/QD; 5 MG, UID/QD, ORAL
     Route: 048
     Dates: start: 20060101, end: 20070101
  2. VESICARE [Suspect]
     Indication: BLADDER DISORDER
     Dosage: 5 MG, UID/QD; 5 MG, UID/QD, ORAL
     Route: 048
     Dates: start: 20070301

REACTIONS (3)
  - CONSTIPATION [None]
  - DRY MOUTH [None]
  - DRY THROAT [None]
